FAERS Safety Report 9525474 (Version 2)
Quarter: 2013Q3

REPORT INFORMATION
  Report Type: Spontaneous
  Country: IT (occurrence: IT)
  Receive Date: 20130916
  Receipt Date: 20130924
  Transmission Date: 20140515
  Serious: Yes (Hospitalization)
  Sender: FDA-Public Use
  Company Number: IT-PFIZER INC-2013264663

PATIENT
  Age: 44 Year
  Sex: Female

DRUGS (4)
  1. XANAX [Suspect]
     Dosage: UNK
     Route: 048
  2. XANAX [Suspect]
     Dosage: 2 MG, TOTAL
     Route: 048
     Dates: start: 20130703, end: 20130703
  3. FEVARIN [Suspect]
     Indication: DEPRESSION
     Route: 048
  4. FEVARIN [Suspect]
     Dosage: 900 MG, TOTAL
     Route: 048
     Dates: start: 20130703, end: 20130703

REACTIONS (3)
  - Abdominal pain upper [Recovered/Resolved]
  - Sopor [Recovered/Resolved]
  - Drug abuse [Recovered/Resolved]
